FAERS Safety Report 10312684 (Version 1)
Quarter: 2014Q3

REPORT INFORMATION
  Report Type: Spontaneous
  Country: US (occurrence: US)
  Receive Date: 20140718
  Receipt Date: 20140718
  Transmission Date: 20150326
  Serious: No
  Sender: FDA-Public Use
  Company Number: US-ASTRAZENECA-2014SE49708

PATIENT
  Age: 767 Month
  Sex: Male

DRUGS (10)
  1. PREDNISONE. [Concomitant]
     Active Substance: PREDNISONE
     Indication: RASH
  2. LISINOPRIL. [Suspect]
     Active Substance: LISINOPRIL
     Indication: BLOOD PRESSURE ABNORMAL
     Route: 048
     Dates: start: 1999
  3. SPIRIVA [Concomitant]
     Active Substance: TIOTROPIUM BROMIDE MONOHYDRATE
     Indication: EMPHYSEMA
     Dosage: UNKNOWN DAILY
     Route: 055
     Dates: start: 1999
  4. ASTHMANEX [Concomitant]
     Indication: EMPHYSEMA
     Dosage: 2 PUFFS BID
     Route: 055
     Dates: start: 1999, end: 201401
  5. FORADIL [Concomitant]
     Active Substance: FORMOTEROL FUMARATE
     Indication: EMPHYSEMA
     Dosage: UNKNOWN DAILY
     Route: 055
     Dates: start: 1999, end: 201401
  6. SYMBICORT [Suspect]
     Active Substance: BUDESONIDE\FORMOTEROL FUMARATE DIHYDRATE
     Indication: EMPHYSEMA
     Dosage: 80/4.5, 2 PUFFS DAILY
     Route: 055
  7. TRIAMCINOLONE ACETONIDE. [Concomitant]
     Active Substance: TRIAMCINOLONE ACETONIDE
     Indication: RASH
     Dosage: 0.1%
  8. TRIAMCINOLONE ACETONIDE. [Concomitant]
     Active Substance: TRIAMCINOLONE ACETONIDE
     Indication: RASH
     Dosage: 0.025%
  9. CETAPHIL [Concomitant]
     Active Substance: AVOBENZONE\OCTOCRYLENE\TRICLOSAN
     Indication: RASH
     Dosage: PRN
  10. SYMBICORT [Suspect]
     Active Substance: BUDESONIDE\FORMOTEROL FUMARATE DIHYDRATE
     Indication: EMPHYSEMA
     Dosage: 80/4.5, 2 PUFFS BID
     Route: 055
     Dates: start: 201401, end: 20140625

REACTIONS (3)
  - Rash [Recovering/Resolving]
  - Intentional product misuse [Unknown]
  - Lung disorder [Unknown]

NARRATIVE: CASE EVENT DATE: 201402
